FAERS Safety Report 11146043 (Version 1)
Quarter: 2015Q2

REPORT INFORMATION
  Report Type: Spontaneous
  Country: US (occurrence: None)
  Receive Date: 20150527
  Receipt Date: 20150527
  Transmission Date: 20150821
  Serious: No
  Sender: FDA-Public Use
  Company Number: None

PATIENT
  Age: 46 Year
  Sex: Female
  Weight: 136.08 kg

DRUGS (17)
  1. TYLENOL [Concomitant]
     Active Substance: ACETAMINOPHEN
  2. LAMOTRIGINE. [Concomitant]
     Active Substance: LAMOTRIGINE
  3. ADDERALL XR [Concomitant]
     Active Substance: AMPHETAMINE ASPARTATE\AMPHETAMINE SULFATE\DEXTROAMPHETAMINE SACCHARATE\DEXTROAMPHETAMINE SULFATE
  4. MULTIVITAMIN [Concomitant]
     Active Substance: VITAMINS
  5. BRINTELLIX [Suspect]
     Active Substance: VORTIOXETINE HYDROBROMIDE
     Indication: MAJOR DEPRESSION
     Route: 048
     Dates: start: 20150327, end: 20150405
  6. TRIHEXYPHENDRYL [Concomitant]
  7. LEXAPRO [Concomitant]
     Active Substance: ESCITALOPRAM OXALATE
  8. PREDNISONE. [Concomitant]
     Active Substance: PREDNISONE
  9. ABILIFY [Concomitant]
     Active Substance: ARIPIPRAZOLE
  10. CLONEZEPARN [Concomitant]
  11. PROPRANOLOL [Concomitant]
     Active Substance: PROPRANOLOL\PROPRANOLOL HYDROCHLORIDE
  12. VITAMIN B12 [Concomitant]
     Active Substance: CYANOCOBALAMIN
  13. CITRACAL [Concomitant]
     Active Substance: CALCIUM CITRATE
  14. HEME IRON POLYPEPTIDE [Concomitant]
  15. TRAMADOL [Concomitant]
     Active Substance: TRAMADOL
  16. LEVOTHYROXIN [Concomitant]
     Active Substance: LEVOTHYROXINE
  17. VITAMIN D [Concomitant]
     Active Substance: CHOLECALCIFEROL

REACTIONS (5)
  - Psychomotor hyperactivity [None]
  - Restlessness [None]
  - Paranoia [None]
  - Mania [None]
  - Delusion [None]

NARRATIVE: CASE EVENT DATE: 20150330
